FAERS Safety Report 23865910 (Version 1)
Quarter: 2024Q2

REPORT INFORMATION
  Report Type: Spontaneous
  Country: SG (occurrence: None)
  Receive Date: 20240517
  Receipt Date: 20240517
  Transmission Date: 20240715
  Serious: Yes (Other)
  Sender: FDA-Public Use
  Company Number: SG-Orion Corporation ORION PHARMA-ENT 2024-0021

PATIENT
  Age: 38 Year
  Sex: Male

DRUGS (10)
  1. ENTACAPONE [Suspect]
     Active Substance: ENTACAPONE
     Indication: Parkinson^s disease
  2. ROPINIROLE [Suspect]
     Active Substance: ROPINIROLE
     Indication: Parkinson^s disease
  3. SELEGILINE [Suspect]
     Active Substance: SELEGILINE
     Indication: Parkinson^s disease
  4. BENSERAZIDE\LEVODOPA [Suspect]
     Active Substance: BENSERAZIDE\LEVODOPA
     Indication: Parkinson^s disease
  5. MIDOMAFETAMINE [Suspect]
     Active Substance: MIDOMAFETAMINE
     Indication: Product used for unknown indication
  6. BENZODIAZEPINE [Suspect]
     Active Substance: BENZODIAZEPINE
     Indication: Product used for unknown indication
     Dosage: OVERDOSED
  7. KETAMINE [Suspect]
     Active Substance: KETAMINE
     Indication: Product used for unknown indication
     Dosage: SNORT
  8. METHAMPHETAMINE [Suspect]
     Active Substance: METHAMPHETAMINE
     Indication: Stress
  9. OXYBATE [Suspect]
     Active Substance: OXYBATE
     Indication: Product used for unknown indication
  10. AMYL NITRITE [Suspect]
     Active Substance: AMYL NITRITE
     Indication: Product used for unknown indication
     Dosage: POPPERS

REACTIONS (3)
  - Drug ineffective [Unknown]
  - Parkinson^s disease [Unknown]
  - Dependence [Unknown]
